FAERS Safety Report 5237819-3 (Version None)
Quarter: 2007Q1

REPORT INFORMATION
  Report Type: 
  Country: None (occurrence: None)
  Receive Date: 20070214
  Receipt Date: 20070131
  Transmission Date: 20070707
  Serious: Yes (Hospitalization)
  Sender: FDA-Public Use
  Company Number: DE-AMGEN-UK206264

PATIENT
  Sex: Female
  Weight: 51 kg

DRUGS (3)
  1. NEULASTA [Suspect]
     Indication: CHEMOTHERAPY
     Route: 058
     Dates: start: 20060721, end: 20061013
  2. CARBOPLATIN [Suspect]
     Dates: start: 20060517, end: 20061012
  3. CAELYX [Suspect]
     Dates: start: 20060517, end: 20061012

REACTIONS (2)
  - PLEURISY [None]
  - SPLENIC RUPTURE [None]
